FAERS Safety Report 4789284-8 (Version None)
Quarter: 2005Q3

REPORT INFORMATION
  Report Type: 
  Country: None (occurrence: None)
  Receive Date: 20050929
  Receipt Date: 20050817
  Transmission Date: 20060218
  Serious: No
  Sender: FDA-Public Use
  Company Number: 05P-163-0308444-00

PATIENT
  Age: 56 Year
  Sex: Female
  Weight: 90.7194 kg

DRUGS (13)
  1. HUMIRA [Suspect]
     Indication: RHEUMATOID ARTHRITIS
     Dosage: 40 MG, 1 IN 2 WK, SUBCUTANEOUS
     Route: 058
     Dates: start: 20030101
  2. ROSIGLITAZONE MALEATE [Concomitant]
  3. LEVOTHYROXINE SODIUM [Concomitant]
  4. LEFLUOMIDE [Concomitant]
  5. RISEDRONATE SODIUM [Concomitant]
  6. CALCIUM CARBONATE [Concomitant]
  7. METFORMIN HCL [Concomitant]
  8. POTASSIUM CHLORIDE [Concomitant]
  9. MAGNESIUM OXIDE [Concomitant]
  10. INDAPAMIDE [Concomitant]
  11. FENOFIBRATE [Concomitant]
  12. PREDNISONE [Concomitant]
  13. CLONIDINE [Concomitant]

REACTIONS (1)
  - UPPER LIMB FRACTURE [None]
